FAERS Safety Report 9101212 (Version 1)
Quarter: 2013Q1

REPORT INFORMATION
  Report Type: Spontaneous
  Country: CA (occurrence: CA)
  Receive Date: 20130215
  Receipt Date: 20130215
  Transmission Date: 20140127
  Serious: Yes (Other)
  Sender: FDA-Public Use
  Company Number: CA-TEVA-386716USA

PATIENT
  Age: 55 Year
  Sex: Female

DRUGS (5)
  1. TRAZODONE [Suspect]
     Dosage: 25 MILLIGRAM DAILY;
     Route: 048
  2. ASA [Concomitant]
     Route: 065
  3. BISOPROLOL [Concomitant]
     Route: 065
  4. CRESTOR [Concomitant]
     Route: 065
  5. PLAVIX [Concomitant]
     Route: 065

REACTIONS (3)
  - Eye oedema [Unknown]
  - Eye irritation [Unknown]
  - Ocular hyperaemia [Unknown]
